FAERS Safety Report 4477347-6 (Version None)
Quarter: 2004Q4

REPORT INFORMATION
  Report Type: 
  Country: None (occurrence: None)
  Receive Date: 20041013
  Receipt Date: 20040928
  Transmission Date: 20050328
  Serious: No
  Sender: FDA-Public Use
  Company Number: 2004GB02330

PATIENT
  Age: 68 Year
  Sex: Male
  Weight: 66 kg

DRUGS (7)
  1. GEFITINIB [Suspect]
     Indication: PROSTATE CANCER
     Dosage: 250 MG QD PO
     Route: 048
     Dates: start: 20040825, end: 20040927
  2. GOSERELIN [Suspect]
     Indication: PROSTATE CANCER
     Dosage: 3.6 MG Q4WK SQ
     Dates: start: 20040830
  3. BICALUTAMIDE [Suspect]
     Indication: PROSTATE CANCER
     Dosage: 50 MG QD PO
     Route: 048
     Dates: start: 20040825
  4. AMLODIPINE [Concomitant]
  5. ASPIRIN [Concomitant]
  6. ATORVASTATIN CALCIUM [Concomitant]
  7. TOLERIANE [Concomitant]

REACTIONS (2)
  - DRUG TOXICITY [None]
  - SKIN INFECTION [None]
